FAERS Safety Report 5448965-3 (Version None)
Quarter: 2007Q3

REPORT INFORMATION
  Report Type: 
  Country: None (occurrence: None)
  Receive Date: 20070911
  Receipt Date: 20070904
  Transmission Date: 20080115
  Serious: Yes (Other)
  Sender: FDA-Public Use
  Company Number: JP-MERCK-0708USA01749

PATIENT
  Age: 84 Year
  Sex: Female

DRUGS (3)
  1. FOSAMAX [Suspect]
     Indication: OSTEOPOROSIS
     Route: 048
     Dates: start: 20040101, end: 20060101
  2. CALCIUM ASPARTATE [Suspect]
     Indication: OSTEOPOROSIS
     Route: 048
     Dates: start: 20040101
  3. ONEALFA [Suspect]
     Indication: OSTEOPOROSIS
     Route: 048
     Dates: start: 20040101

REACTIONS (2)
  - IMPAIRED HEALING [None]
  - OSTEOMYELITIS [None]
